FAERS Safety Report 11312407 (Version 2)
Quarter: 2015Q3

REPORT INFORMATION
  Report Type: Report from Study
  Country: US (occurrence: US)
  Receive Date: 20150727
  Receipt Date: 20150804
  Transmission Date: 20151125
  Serious: Yes (Other)
  Sender: FDA-Public Use
  Company Number: US-ROCHE-1610939

PATIENT
  Sex: Female

DRUGS (2)
  1. BEVACIZUMAB [Suspect]
     Active Substance: BEVACIZUMAB
     Indication: PRODUCT USED FOR UNKNOWN INDICATION
     Route: 065
     Dates: start: 201406, end: 201507
  2. TARCEVA [Suspect]
     Active Substance: ERLOTINIB HYDROCHLORIDE
     Indication: LUNG CARCINOMA CELL TYPE UNSPECIFIED STAGE IV
     Route: 065
     Dates: start: 201406

REACTIONS (12)
  - Alopecia [Unknown]
  - Cough [Unknown]
  - Pyrexia [Unknown]
  - Rash [Unknown]
  - Pruritus [Unknown]
  - Dry skin [Unknown]
  - Asthenia [Unknown]
  - Acne [Unknown]
  - Photophobia [Unknown]
  - Eye discharge [Unknown]
  - Neoplasm [Unknown]
  - Inflammation [Unknown]
